APPROVED DRUG PRODUCT: NALTREXONE HYDROCHLORIDE
Active Ingredient: NALTREXONE HYDROCHLORIDE
Strength: 50MG
Dosage Form/Route: TABLET;ORAL
Application: A091205 | Product #001 | TE Code: AB
Applicant: ACCORD HEALTHCARE INC
Approved: Aug 17, 2011 | RLD: No | RS: No | Type: RX